FAERS Safety Report 6395739 (Version 4)
Quarter: 2013Q4

REPORT INFORMATION
  Report Type: Spontaneous
  Country: US (occurrence: US)
  Receive Date: 20070830
  Receipt Date: 20131017
  Transmission Date: 20140711
  Serious: Yes (Other)
  Sender: FDA-Public Use
  Company Number: US-PFIZER INC-2007070483

PATIENT
  Age: 41 Year
  Sex: Female
  Weight: 63 kg

DRUGS (12)
  1. CORTISONE ACETATE [Suspect]
     Indication: ADDISON^S DISEASE
     Dosage: UNK
  2. CORTEF [Suspect]
     Indication: ADDISON^S DISEASE
     Dosage: 10 MG, UNK
     Route: 048
     Dates: start: 1993
  3. CORTEF [Suspect]
     Dosage: 20 MG, 2X/DAY
     Route: 048
  4. PREDNISONE [Suspect]
     Dosage: 100 MG, UNK
  5. HYDROCORTISONE [Suspect]
     Indication: ADDISON^S DISEASE
     Dosage: 20 MG, UNK
  6. IMITREX [Suspect]
     Indication: MIGRAINE
     Dosage: UNK
  7. FLORINEF [Concomitant]
     Indication: BLOOD PRESSURE MANAGEMENT
  8. FLORINEF [Concomitant]
     Indication: ELECTROLYTE IMBALANCE
  9. NEURONTIN [Concomitant]
  10. SYNTHROID [Concomitant]
     Dosage: 112 UG, 1X/DAY
  11. ESTRACE [Concomitant]
     Dosage: 2 MG, UNK
  12. SOLU-CORTEF [Concomitant]
     Dosage: UNK
     Route: 007

REACTIONS (15)
  - Neoplasm [Unknown]
  - Uterine disorder [Unknown]
  - Thyroid disorder [Unknown]
  - Feeling abnormal [Unknown]
  - Dysphagia [Unknown]
  - Suicide attempt [Unknown]
  - Psychotic disorder [Unknown]
  - Asthenia [Unknown]
  - Nausea [Unknown]
  - Fatigue [Unknown]
  - Malaise [Unknown]
  - Headache [Unknown]
  - Tooth fracture [Unknown]
  - Drug hypersensitivity [Unknown]
  - Drug effect incomplete [Unknown]
